FAERS Safety Report 12413340 (Version 2)
Quarter: 2016Q3

REPORT INFORMATION
  Report Type: Spontaneous
  Country: CH (occurrence: CH)
  Receive Date: 20160527
  Receipt Date: 20160703
  Transmission Date: 20161109
  Serious: Yes (Life-Threatening)
  Sender: FDA-Public Use
  Company Number: CH-UCBSA-2016019679

PATIENT
  Age: 73 Year
  Sex: Female
  Weight: 86 kg

DRUGS (3)
  1. LITALIR [Suspect]
     Active Substance: HYDROXYUREA
     Dosage: 500 MG, ONCE DAILY (QD)
     Route: 048
     Dates: start: 201511
  2. LITALIR [Suspect]
     Active Substance: HYDROXYUREA
     Indication: POLYCYTHAEMIA VERA
     Dosage: 2 X 500 MG DAILY
     Dates: start: 2015, end: 2015
  3. KEPPRA [Suspect]
     Active Substance: LEVETIRACETAM
     Indication: EPILEPSY
     Dosage: 500 MG DAILY
     Route: 048
     Dates: start: 201509, end: 201512

REACTIONS (2)
  - Thrombocytopenia [Recovered/Resolved]
  - Platelet count abnormal [Recovered/Resolved]

NARRATIVE: CASE EVENT DATE: 20151124
